FAERS Safety Report 6253571-7 (Version None)
Quarter: 2009Q3

REPORT INFORMATION
  Report Type: 
  Country: None (occurrence: None)
  Receive Date: 20090701
  Receipt Date: 20090619
  Transmission Date: 20100115
  Serious: Yes (Other)
  Sender: FDA-Public Use
  Company Number: GB-JNJCH-2009017437

PATIENT
  Sex: Male

DRUGS (2)
  1. NICORETTE [Suspect]
     Indication: DRUG USE FOR UNKNOWN INDICATION
     Route: 062
  2. LAMOTRIGINE [Concomitant]
     Indication: CONVULSION
     Dosage: TEXT:UNSPECIFIED
     Route: 065

REACTIONS (2)
  - CONVULSION [None]
  - EXPIRED DRUG ADMINISTERED [None]
